FAERS Safety Report 20020697 (Version 1)
Quarter: 2021Q4

REPORT INFORMATION
  Report Type: Spontaneous
  Country: None (occurrence: US)
  Receive Date: 20211101
  Receipt Date: 20211101
  Transmission Date: 20220303
  Serious: Yes (Hospitalization, Other)
  Sender: FDA-Public Use
  Company Number: US-Acella Pharmaceuticals, LLC-2121283

PATIENT
  Age: 3 Year
  Sex: Male

DRUGS (1)
  1. BROMPHENIRAMINE MAL, PSEUDOEPHEDRINE HCL, AND DEXTROMETHORPHAN HBR [Suspect]
     Active Substance: BROMPHENIRAMINE MALEATE\DEXTROMETHORPHAN HYDROBROMIDE\PSEUDOEPHEDRINE HYDROCHLORIDE
     Indication: Product used for unknown indication
     Route: 065

REACTIONS (6)
  - Tremor [Unknown]
  - Staring [Unknown]
  - Somnolence [Unknown]
  - Hypoxia [Unknown]
  - Mental status changes [Unknown]
  - False positive investigation result [Recovered/Resolved]
